FAERS Safety Report 6734319-6 (Version None)
Quarter: 2010Q2

REPORT INFORMATION
  Report Type: 
  Country: None (occurrence: None)
  Receive Date: 20100520
  Receipt Date: 20100517
  Transmission Date: 20101027
  Serious: Yes (Other)
  Sender: FDA-Public Use
  Company Number: CA-ROCHE-703485

PATIENT
  Age: 11 Year
  Sex: Female

DRUGS (7)
  1. MYCOPHENOLATE MOFETIL [Suspect]
     Route: 065
  2. RITUXIMAB [Suspect]
     Route: 065
  3. ANTI-THYMOCYTE GLOBULIN NOS [Suspect]
     Route: 065
  4. METHYLPREDNISOLONE [Suspect]
     Route: 065
  5. PREDNISONE TAB [Suspect]
     Route: 065
  6. TACROLIMUS [Suspect]
     Route: 065
  7. AZATHIOPRINE [Suspect]
     Route: 065

REACTIONS (4)
  - DIARRHOEA [None]
  - EPSTEIN-BARR VIRUS ASSOCIATED LYMPHOPROLIFERATIVE DISORDER [None]
  - ORGANISING PNEUMONIA [None]
  - TRANSPLANT REJECTION [None]
